FAERS Safety Report 8448470-6 (Version None)
Quarter: 2012Q2

REPORT INFORMATION
  Report Type: 
  Country: None (occurrence: None)
  Receive Date: 20120619
  Receipt Date: 20120612
  Transmission Date: 20120825
  Serious: Yes (Hospitalization, Other)
  Sender: FDA-Public Use
  Company Number: US-ROCHE-1075734

PATIENT
  Age: 45 Year
  Sex: Female
  Weight: 152.2 kg

DRUGS (2)
  1. AVASTIN [Suspect]
     Indication: OVARIAN EPITHELIAL CANCER
     Dates: start: 20120418
  2. BLINDED EVEROLIMUS [Suspect]
     Indication: OVARIAN EPITHELIAL CANCER
     Route: 048
     Dates: start: 20120418

REACTIONS (10)
  - SUPRAVENTRICULAR TACHYCARDIA [None]
  - HYPONATRAEMIA [None]
  - ANORECTAL INFECTION [None]
  - HYPERGLYCAEMIA [None]
  - HYPOPHOSPHATAEMIA [None]
  - ASPARTATE AMINOTRANSFERASE INCREASED [None]
  - TROPONIN I INCREASED [None]
  - SEPSIS [None]
  - HYPOCALCAEMIA [None]
  - HYPOALBUMINAEMIA [None]
